FAERS Safety Report 9721294 (Version 2)
Quarter: 2013Q4

REPORT INFORMATION
  Report Type: Spontaneous
  Country: US (occurrence: US)
  Receive Date: 20131129
  Receipt Date: 20131219
  Transmission Date: 20140711
  Serious: No
  Sender: FDA-Public Use
  Company Number: US-PFIZER INC-2013338962

PATIENT
  Age: 30 Year
  Sex: Female

DRUGS (1)
  1. DILANTIN-125 [Suspect]
     Indication: CONVULSION
     Dosage: 3 HS
     Route: 048
     Dates: start: 1993, end: 1993

REACTIONS (2)
  - Drug hypersensitivity [Unknown]
  - White blood cell count decreased [Unknown]
